FAERS Safety Report 8094140-6 (Version None)
Quarter: 2012Q1

REPORT INFORMATION
  Report Type: 
  Country: None (occurrence: None)
  Receive Date: 20120130
  Receipt Date: 20120130
  Transmission Date: 20120608
  Serious: Yes (Hospitalization, Other)
  Sender: FDA-Public Use
  Company Number: None

PATIENT
  Sex: Female
  Weight: 68.038 kg

DRUGS (1)
  1. MINOCYCLINE HCL [Suspect]
     Indication: ACNE
     Dosage: 100.0 MG
     Route: 048
     Dates: start: 20120106, end: 20120123

REACTIONS (7)
  - MUSCULOSKELETAL DISCOMFORT [None]
  - VISION BLURRED [None]
  - DIZZINESS [None]
  - PHOTOPHOBIA [None]
  - INTRACRANIAL PRESSURE INCREASED [None]
  - HEADACHE [None]
  - DIPLOPIA [None]
